FAERS Safety Report 21141436 (Version 1)
Quarter: 2022Q3

REPORT INFORMATION
  Report Type: Spontaneous
  Country: DK (occurrence: DK)
  Receive Date: 20220728
  Receipt Date: 20220728
  Transmission Date: 20221027
  Serious: Yes (Other)
  Sender: FDA-Public Use
  Company Number: None

PATIENT
  Age: 74 Year
  Sex: Male

DRUGS (1)
  1. KEYTRUDA [Suspect]
     Active Substance: PEMBROLIZUMAB
     Indication: Malignant melanoma
     Dosage: UNK, DOSE: UNKNOWN STRENGTH: 25 MG/ML
     Dates: start: 20171106, end: 20190405

REACTIONS (12)
  - Adrenal insufficiency [Unknown]
  - Rash [Unknown]
  - Arthralgia [Unknown]
  - Polymyalgia rheumatica [Unknown]
  - Muscular weakness [Unknown]
  - Osteoarthritis [Unknown]
  - Hypophysitis [Unknown]
  - Dizziness [Recovered/Resolved]
  - Hot flush [Recovered/Resolved]
  - Fatigue [Unknown]
  - Myalgia [Unknown]
  - Pruritus [Recovered/Resolved]

NARRATIVE: CASE EVENT DATE: 20190101
